FAERS Safety Report 23880807 (Version 1)
Quarter: 2024Q2

REPORT INFORMATION
  Report Type: Spontaneous
  Country: US (occurrence: None)
  Receive Date: 20240521
  Receipt Date: 20240521
  Transmission Date: 20240716
  Serious: Yes (Hospitalization)
  Sender: FDA-Public Use
  Company Number: None

PATIENT
  Age: 72 Year
  Sex: Male

DRUGS (1)
  1. NIFEDIPINE EXTENDED-RELEASE [Suspect]
     Active Substance: NIFEDIPINE
     Indication: Oedema peripheral
     Dosage: FREQUENCY : TWICE A DAY;?
     Route: 048
     Dates: start: 20240301, end: 20240322

REACTIONS (8)
  - Oedema peripheral [None]
  - Hypervolaemia [None]
  - Dyspnoea [None]
  - Nephropathy [None]
  - Fluid retention [None]
  - Chest pain [None]
  - Pain in extremity [None]
  - Peripheral swelling [None]
